FAERS Safety Report 15747028 (Version 2)
Quarter: 2020Q1

REPORT INFORMATION
  Report Type: Spontaneous
  Country: US (occurrence: US)
  Receive Date: 20181220
  Receipt Date: 20200207
  Transmission Date: 20200409
  Serious: Yes (Other)
  Sender: FDA-Public Use
  Company Number: US-009507513-1812USA008041

PATIENT
  Sex: Female

DRUGS (1)
  1. KEYTRUDA [Suspect]
     Active Substance: PEMBROLIZUMAB
     Indication: MALIGNANT MELANOMA
     Dosage: UNKNOWN DOSE EVERY 21 DAYS
     Route: 042
     Dates: start: 20180914

REACTIONS (9)
  - Hyperthyroidism [Unknown]
  - Therapeutic response unexpected [Unknown]
  - Dehydration [Unknown]
  - Asthenia [Unknown]
  - Feeling of body temperature change [Unknown]
  - Thinking abnormal [Unknown]
  - Rash [Unknown]
  - Fatigue [Unknown]
  - Sleep disorder due to a general medical condition [Unknown]

NARRATIVE: CASE EVENT DATE: 2018
